FAERS Safety Report 6569875-4 (Version None)
Quarter: 2010Q1

REPORT INFORMATION
  Report Type: 
  Country: None (occurrence: None)
  Receive Date: 20100204
  Receipt Date: 20100122
  Transmission Date: 20100710
  Serious: Yes (Other)
  Sender: FDA-Public Use
  Company Number: PHHY2010DE04340

PATIENT
  Sex: Female

DRUGS (2)
  1. DAFIRO [Suspect]
     Dosage: 14 TABLETS AT ONCE
     Route: 048
     Dates: start: 20100121, end: 20100121
  2. COVERCARD [Suspect]
     Dosage: 30 TABLETS (150 MG) AT ONCE
     Route: 048
     Dates: start: 20100121, end: 20100121

REACTIONS (1)
  - SUICIDE ATTEMPT [None]
